FAERS Safety Report 5614577-1 (Version None)
Quarter: 2008Q1

REPORT INFORMATION
  Report Type: 
  Country: None (occurrence: None)
  Receive Date: 20080205
  Receipt Date: 20080131
  Transmission Date: 20080703
  Serious: Yes (Other)
  Sender: FDA-Public Use
  Company Number: US-BOEHRINGER INGELHEIM GMBH, GERMANY-2008-BP-01579BP

PATIENT
  Sex: Female

DRUGS (1)
  1. MICARDIS [Suspect]
     Dates: start: 20080101, end: 20080101

REACTIONS (2)
  - COUGH [None]
  - PNEUMONIA [None]
